FAERS Safety Report 6781685-1 (Version None)
Quarter: 2010Q2

REPORT INFORMATION
  Report Type: 
  Country: None (occurrence: None)
  Receive Date: 20100621
  Receipt Date: 20100609
  Transmission Date: 20101027
  Serious: Yes (Other)
  Sender: FDA-Public Use
  Company Number: US-SANOFI-AVENTIS-2010SA033821

PATIENT
  Sex: Female

DRUGS (4)
  1. LANTUS [Suspect]
     Dosage: DOSE:22 UNIT(S)
     Route: 058
     Dates: start: 20070101
  2. APIDRA [Suspect]
     Dosage: 8-10 UNITS TID
     Route: 058
     Dates: start: 20070101
  3. OPTICLICK [Suspect]
     Dates: start: 20070101
  4. OPTICLICK [Suspect]
     Dates: start: 20070101

REACTIONS (2)
  - CONDITION AGGRAVATED [None]
  - DIABETIC RETINOPATHY [None]
